FAERS Safety Report 22536567 (Version 1)
Quarter: 2023Q2

REPORT INFORMATION
  Report Type: Spontaneous
  Country: RU (occurrence: RU)
  Receive Date: 20230608
  Receipt Date: 20230608
  Transmission Date: 20230722
  Serious: Yes (Other)
  Sender: FDA-Public Use
  Company Number: RU-FreseniusKabi-FK202307828

PATIENT
  Sex: Male
  Weight: 1640 kg

DRUGS (11)
  1. ETOPOSIDE [Suspect]
     Active Substance: ETOPOSIDE
     Indication: Foetal exposure during pregnancy
     Dosage: R-DAEPOCH SCHEME
  2. CEFTRIAXONE [Suspect]
     Active Substance: CEFTRIAXONE
     Indication: Foetal exposure during pregnancy
     Dosage: R-DAEPOCH SCHEME
  3. AZITHROMYCIN [Suspect]
     Active Substance: AZITHROMYCIN
     Indication: Foetal exposure during pregnancy
     Dosage: ANTIBIOTIC THERAPY
  4. INGAVIRIN [Suspect]
     Active Substance: INGAVIRIN
     Indication: Foetal exposure during pregnancy
     Dosage: ANTIBIOTIC THERAPY
  5. DEXAMETHASONE [Suspect]
     Active Substance: DEXAMETHASONE
     Indication: Foetal exposure during pregnancy
     Dosage: ANTIBIOTIC THERAPY
  6. AMBROXOL [Suspect]
     Active Substance: AMBROXOL
     Indication: Foetal exposure during pregnancy
     Dosage: ANTIBIOTIC THERAPY
  7. PREDNISONE [Suspect]
     Active Substance: PREDNISONE
     Indication: Foetal exposure during pregnancy
     Dosage: R-DAEPOCH SCHEME
  8. ONCOVIN [Suspect]
     Active Substance: VINCRISTINE SULFATE
     Indication: Foetal exposure during pregnancy
     Dosage: R-DAEPOCH SCHEME
  9. CYCLOPHOSPHAMIDE [Suspect]
     Active Substance: CYCLOPHOSPHAMIDE
     Indication: Foetal exposure during pregnancy
     Dosage: R-DAEPOCH SCHEME
  10. DOXORUBICIN HYDROCHLORIDE [Suspect]
     Active Substance: DOXORUBICIN HYDROCHLORIDE
     Indication: Foetal exposure during pregnancy
     Dosage: R-DAEPOCH SCHEME
  11. RITUXIMAB [Suspect]
     Active Substance: RITUXIMAB
     Indication: Foetal exposure during pregnancy
     Dosage: R-DAEPOCH SCHEME

REACTIONS (6)
  - Intraventricular haemorrhage [Unknown]
  - Neonatal respiratory distress syndrome [Unknown]
  - Premature baby [Unknown]
  - Low birth weight baby [Unknown]
  - Foetal exposure during pregnancy [Unknown]
  - Anaemia [Unknown]
